FAERS Safety Report 16710923 (Version 3)
Quarter: 2019Q3

REPORT INFORMATION
  Report Type: Spontaneous
  Country: US (occurrence: US)
  Receive Date: 20190816
  Receipt Date: 20190912
  Transmission Date: 20191004
  Serious: Yes (Other)
  Sender: FDA-Public Use
  Company Number: US-LUNDBECK-DKLU3002400

PATIENT
  Sex: Female

DRUGS (6)
  1. ONFI [Suspect]
     Active Substance: CLOBAZAM
     Dosage: 35 MG EVERY OTHER DAY ALTERNATING WITH 40 MG EVERY OTHER DAY
     Route: 065
  2. ONFI [Suspect]
     Active Substance: CLOBAZAM
     Route: 065
  3. ONFI [Suspect]
     Active Substance: CLOBAZAM
     Dosage: 35 MG EVERY OTHER DAY ALTERNATING WITH 40 MG EVERY OTHER DAY
     Route: 065
  4. PHENOBARBITAL. [Concomitant]
     Active Substance: PHENOBARBITAL
     Indication: SEIZURE
     Route: 065
  5. ZONEGRAN [Concomitant]
     Active Substance: ZONISAMIDE
     Indication: SEIZURE
     Route: 065
  6. ONFI [Suspect]
     Active Substance: CLOBAZAM
     Indication: SEIZURE
     Route: 065

REACTIONS (9)
  - Aggression [Not Recovered/Not Resolved]
  - Insomnia [Recovered/Resolved]
  - Constipation [Recovered/Resolved]
  - Fatigue [Unknown]
  - Irritability [Not Recovered/Not Resolved]
  - Sleep disorder [Unknown]
  - Agitation [Not Recovered/Not Resolved]
  - Seizure [Unknown]
  - Drooling [Not Recovered/Not Resolved]
